FAERS Safety Report 9890829 (Version 1)
Quarter: 2014Q1

REPORT INFORMATION
  Report Type: Spontaneous
  Country: US (occurrence: None)
  Receive Date: 20140211
  Receipt Date: 20140211
  Transmission Date: 20141002
  Serious: No
  Sender: FDA-Public Use
  Company Number: None

PATIENT
  Sex: 0

DRUGS (1)
  1. ATORVASTATIN 20MG [Suspect]

REACTIONS (2)
  - Medication error [None]
  - Drug dispensed to wrong patient [None]
